FAERS Safety Report 4379228-5 (Version None)
Quarter: 2004Q2

REPORT INFORMATION
  Report Type: 
  Country: None (occurrence: None)
  Receive Date: 20040610
  Receipt Date: 20040528
  Transmission Date: 20050107
  Serious: Yes (Hospitalization)
  Sender: FDA-Public Use
  Company Number: FR-JNJFOC-20040600417

PATIENT
  Age: 35 Year
  Sex: Female

DRUGS (5)
  1. RISPERDAL [Suspect]
     Dosage: SEE IMAGE
     Route: 048
     Dates: start: 20040501, end: 20040501
  2. RISPERDAL [Suspect]
     Dosage: SEE IMAGE
     Route: 048
     Dates: start: 20040501, end: 20040501
  3. RISPERDAL [Suspect]
     Dosage: SEE IMAGE
     Route: 048
     Dates: start: 20040501
  4. XANAX [Concomitant]
  5. LEVOTHYROXINE SODIUM [Concomitant]

REACTIONS (2)
  - LUNG INFECTION [None]
  - MYXOEDEMA COMA [None]
